FAERS Safety Report 23946489 (Version 2)
Quarter: 2024Q3

REPORT INFORMATION
  Report Type: Spontaneous
  Country: PK (occurrence: PK)
  Receive Date: 20240606
  Receipt Date: 20240731
  Transmission Date: 20241016
  Serious: Yes (Other)
  Sender: AMGEN
  Company Number: PK-PFIZER INC-PV202200003323

PATIENT
  Age: 16 Year
  Sex: Female

DRUGS (6)
  1. ENBREL [Suspect]
     Active Substance: BENZYL ALCOHOL\ETANERCEPT
     Indication: Rheumatoid arthritis
     Dosage: 50 MG, WEEKLY
     Route: 058
  2. ENBREL [Suspect]
     Active Substance: BENZYL ALCOHOL\ETANERCEPT
     Dosage: 50 MG, EVERY 15 DAYS
     Route: 065
  3. ENBREL [Suspect]
     Active Substance: BENZYL ALCOHOL\ETANERCEPT
     Dosage: 50 MG, WEEKLY
     Route: 058
     Dates: start: 20220616
  4. Ruling [Concomitant]
     Indication: Product used for unknown indication
     Dosage: 40 MG, 1X/DAY
     Route: 048
  5. DELTACORTRIL [Concomitant]
     Active Substance: PREDNISOLONE
     Indication: Product used for unknown indication
     Dosage: 10 MG (2 TABLETS), 1X/DAY
     Route: 065
  6. EVION [Concomitant]
     Active Substance: .ALPHA.-TOCOPHEROL ACETATE
     Indication: Product used for unknown indication
     Dosage: 400 MG, 2X/DAY
     Route: 048

REACTIONS (3)
  - Tuberculosis [Unknown]
  - Synovitis [Unknown]
  - Off label use [Unknown]
